FAERS Safety Report 9530198 (Version 2)
Quarter: 2013Q3

REPORT INFORMATION
  Report Type: Spontaneous
  Country: NL (occurrence: NL)
  Receive Date: 20130917
  Receipt Date: 20130917
  Transmission Date: 20140515
  Serious: Yes (Death)
  Sender: FDA-Public Use
  Company Number: NL-BAXTER-2013BAX029047

PATIENT
  Sex: 0

DRUGS (8)
  1. EXTRANEAL [Suspect]
     Indication: DIABETIC NEPHROPATHY
     Route: 033
  2. EXTRANEAL [Suspect]
     Indication: RENAL FAILURE
  3. EXTRANEAL [Suspect]
     Indication: DIABETES MELLITUS
  4. EXTRANEAL [Suspect]
     Indication: HYPERTENSION
  5. PHYSIONEAL 40 GLUCOSE 1.36% W/V / 13.6 MG/ML [Suspect]
     Indication: DIABETIC NEPHROPATHY
     Route: 033
  6. PHYSIONEAL 40 GLUCOSE 1.36% W/V / 13.6 MG/ML [Suspect]
     Indication: RENAL FAILURE
  7. PHYSIONEAL 40 GLUCOSE 1.36% W/V / 13.6 MG/ML [Suspect]
     Indication: DIABETES MELLITUS
  8. PHYSIONEAL 40 GLUCOSE 1.36% W/V / 13.6 MG/ML [Suspect]
     Indication: HYPERTENSION

REACTIONS (1)
  - Myocardial infarction [Fatal]
